FAERS Safety Report 12866089 (Version 1)
Quarter: 2016Q4

REPORT INFORMATION
  Report Type: Spontaneous
  Country: JP (occurrence: JP)
  Receive Date: 20161020
  Receipt Date: 20161020
  Transmission Date: 20170207
  Serious: Yes (Other)
  Sender: FDA-Public Use
  Company Number: JP-JNJFOC-20161013169

PATIENT

DRUGS (1)
  1. ITRIZOLE [Suspect]
     Active Substance: ITRACONAZOLE
     Indication: PROPHYLAXIS
     Dosage: BETWEEN 2011 AND 2015
     Route: 048

REACTIONS (2)
  - Systemic mycosis [Unknown]
  - Drug hypersensitivity [Unknown]
